FAERS Safety Report 9451455 (Version 2)
Quarter: 2014Q2

REPORT INFORMATION
  Report Type: Report from Study
  Country: US (occurrence: US)
  Receive Date: 20130809
  Receipt Date: 20140410
  Transmission Date: 20141212
  Serious: Yes (Hospitalization)
  Sender: FDA-Public Use
  Company Number: US-ROCHE-1259539

PATIENT
  Age: 60 Year
  Sex: Male
  Weight: 95.6 kg

DRUGS (15)
  1. PEG-INTERFERON ALFA 2A [Suspect]
     Indication: HEPATITIS C
     Route: 058
     Dates: start: 20130702
  2. RIBAVIRIN [Suspect]
     Indication: HEPATITIS C
     Route: 048
     Dates: start: 20130115
  3. TELAPREVIR [Suspect]
     Indication: HEPATITIS C
     Route: 048
     Dates: start: 20120925, end: 20121217
  4. CYCLOSPORIN [Suspect]
     Indication: HEPATITIS C
     Route: 048
     Dates: start: 20121220
  5. CYCLOSPORIN [Suspect]
     Route: 048
     Dates: start: 20121220
  6. OMEPRAZOLE [Concomitant]
     Route: 065
     Dates: start: 20130420
  7. PROCRIT [Concomitant]
     Route: 065
     Dates: start: 20130110
  8. ADVAIR [Concomitant]
     Route: 065
     Dates: start: 20121226
  9. BENADRYL (UNITED STATES) [Concomitant]
     Route: 065
     Dates: start: 20121105
  10. METFORMIN [Concomitant]
     Route: 065
     Dates: start: 20130605, end: 20130716
  11. JANUVIA [Concomitant]
     Route: 065
     Dates: start: 20110315, end: 20130716
  12. TRIAMCINOLONE [Concomitant]
     Route: 065
     Dates: start: 20121004
  13. OMEGA 3 [Concomitant]
     Route: 065
     Dates: start: 20120524
  14. MAGNESIUM OXIDE [Concomitant]
     Route: 065
     Dates: start: 20121001
  15. CARVEDILOL [Concomitant]
     Route: 065

REACTIONS (2)
  - Pneumonia [Not Recovered/Not Resolved]
  - Pleural effusion [Unknown]
